FAERS Safety Report 5074788-3 (Version None)
Quarter: 2006Q3

REPORT INFORMATION
  Report Type: 
  Country: None (occurrence: None)
  Receive Date: 20060807
  Receipt Date: 20060721
  Transmission Date: 20061208
  Serious: Yes (Hospitalization)
  Sender: FDA-Public Use
  Company Number: 8017286

PATIENT
  Age: 3 Year
  Sex: Male
  Weight: 10 kg

DRUGS (4)
  1. KEPPRA [Suspect]
     Indication: EPILEPSY
     Dosage: 100 MG 2/D
     Dates: start: 20060301
  2. PHENOBARBITAL TAB [Suspect]
     Indication: EPILEPSY
     Dosage: 25 MG 2/D
     Dates: start: 20040201
  3. ALDACTONE [Concomitant]
  4. LASILIX [Concomitant]

REACTIONS (5)
  - ANTICONVULSANT DRUG LEVEL INCREASED [None]
  - COMA [None]
  - DEPRESSED LEVEL OF CONSCIOUSNESS [None]
  - DRUG INTERACTION [None]
  - HYPOTONIA [None]
